FAERS Safety Report 15400961 (Version 1)
Quarter: 2018Q3

REPORT INFORMATION
  Report Type: Spontaneous
  Country: US (occurrence: US)
  Receive Date: 20180913
  Receipt Date: 20180913
  Transmission Date: 20181010
  Serious: No
  Sender: FDA-Public Use
  Company Number: None

PATIENT
  Age: 55 Year
  Sex: Female
  Weight: 133.81 kg

DRUGS (3)
  1. RASUVO [Suspect]
     Active Substance: METHOTREXATE SODIUM
     Indication: RHEUMATOID ARTHRITIS
     Route: 058
     Dates: start: 201603
  2. REMICADE [Suspect]
     Active Substance: INFLIXIMAB
     Indication: RHEUMATOID ARTHRITIS
     Dosage: AT WEEK 0 WEEK 2 AND WEEK 6 THEN EVERY 8 WEEKS AS DIRECTED
     Route: 042
     Dates: start: 201611
  3. RASUVO [Suspect]
     Active Substance: METHOTREXATE SODIUM
     Indication: VITAMIN D DEFICIENCY
     Route: 058
     Dates: start: 201603

REACTIONS (1)
  - Hospitalisation [None]
